FAERS Safety Report 25005871 (Version 1)
Quarter: 2025Q1

REPORT INFORMATION
  Report Type: Spontaneous
  Country: US (occurrence: US)
  Receive Date: 20250224
  Receipt Date: 20250224
  Transmission Date: 20250409
  Serious: No
  Sender: PFIZER
  Company Number: US-PFIZER INC-202500039659

PATIENT
  Age: 60 Year
  Sex: Female
  Weight: 113.4 kg

DRUGS (2)
  1. XELJANZ XR [Suspect]
     Active Substance: TOFACITINIB CITRATE
     Indication: Rheumatoid arthritis
     Dosage: 11 MG, 1X/DAY (ONCE A DAY WITH MORNING MEDS)
     Route: 048
  2. PREDNISONE [Concomitant]
     Active Substance: PREDNISONE
     Dosage: 5 MG, 1X/DAY

REACTIONS (4)
  - Lung disorder [Unknown]
  - Pain in extremity [Unknown]
  - Limb discomfort [Unknown]
  - Illness [Unknown]
